FAERS Safety Report 4667464-X (Version None)
Quarter: 2005Q2

REPORT INFORMATION
  Report Type: 
  Country: None (occurrence: None)
  Receive Date: 20050520
  Receipt Date: 20050304
  Transmission Date: 20051028
  Serious: Yes (Hospitalization, Other)
  Sender: FDA-Public Use
  Company Number: MW-BOEHRINGER INGELHEIM PHARMMACEUTICALS, INC.-2005-BP-03439BP

PATIENT
  Age: 14 Day
  Sex: Male

DRUGS (1)
  1. VIRAMUNE [Suspect]
     Indication: HIV INFECTION
     Route: 048
     Dates: start: 20020624, end: 20020624

REACTIONS (9)
  - ANAEMIA [None]
  - COUGH [None]
  - DRUG EXPOSURE DURING PREGNANCY [None]
  - HYPERSENSITIVITY [None]
  - IRRITABILITY [None]
  - PYREXIA [None]
  - RASH [None]
  - RASH GENERALISED [None]
  - RASH MACULO-PAPULAR [None]
